FAERS Safety Report 8764457 (Version 1)
Quarter: 2012Q4

REPORT INFORMATION
  Report Type: Report from Study
  Country: US (occurrence: US)
  Receive Date: 20120831
  Receipt Date: 20120831
  Transmission Date: 20130627
  Serious: Yes (Other)
  Sender: FDA-Public Use
  Company Number: US-ABBOTT-12P-163-0972730-00

PATIENT
  Sex: Male
  Weight: 84.44 kg

DRUGS (3)
  1. HUMIRA 40 MG/0.8 ML PEN [Suspect]
     Indication: RHEUMATOID ARTHRITIS
     Dates: end: 201109
  2. ZIPZOR [Concomitant]
     Indication: PAIN
  3. SIMPONI [Concomitant]
     Indication: RHEUMATOID ARTHRITIS

REACTIONS (4)
  - Hernia [Recovered/Resolved]
  - Hernia pain [Recovered/Resolved]
  - Syncope [Recovered/Resolved]
  - Arthralgia [Not Recovered/Not Resolved]
